FAERS Safety Report 9404447 (Version 3)
Quarter: 2013Q3

REPORT INFORMATION
  Report Type: Spontaneous
  Country: JP (occurrence: JP)
  Receive Date: 20130717
  Receipt Date: 20130808
  Transmission Date: 20140515
  Serious: Yes (Other)
  Sender: FDA-Public Use
  Company Number: JP-ASTELLAS-2013US007512

PATIENT
  Age: 90 Year
  Sex: Female

DRUGS (2)
  1. AMBISOME [Suspect]
     Indication: CANDIDA INFECTION
     Dosage: UNK G/DAY, UID/QD
     Route: 042
  2. CEFTRIAXONE SODIUM [Suspect]
     Indication: PRODUCT USED FOR UNKNOWN INDICATION
     Dosage: 1 G/DAY, UID/QD
     Route: 042

REACTIONS (1)
  - Pancytopenia [Recovered/Resolved]
